FAERS Safety Report 23176010 (Version 3)
Quarter: 2023Q4

REPORT INFORMATION
  Report Type: Spontaneous
  Country: US (occurrence: US)
  Receive Date: 20231113
  Receipt Date: 20231213
  Transmission Date: 20240109
  Serious: No
  Sender: FDA-Public Use
  Company Number: US-AMGEN-USASP2023201889

PATIENT
  Age: 49 Year
  Sex: Female

DRUGS (12)
  1. OTEZLA [Suspect]
     Active Substance: APREMILAST
     Indication: Psoriasis
     Dosage: 30 MILLIGRAM, BID
     Route: 048
     Dates: start: 20221005, end: 202212
  2. OTEZLA [Suspect]
     Active Substance: APREMILAST
     Dosage: UNK, TITRATION PACK STARTED
     Route: 048
     Dates: start: 20230221, end: 20230225
  3. OTEZLA [Suspect]
     Active Substance: APREMILAST
     Dosage: 30 MILLIGRAM, BID
     Route: 048
     Dates: start: 20230226, end: 2023
  4. CALCIPOTRIENE [Concomitant]
     Active Substance: CALCIPOTRIENE
     Dosage: UNK, TWICE DAILY FOR TWO WEEKS, ALTERNATE EVERY TWO WEEKS
     Route: 065
  5. CICLOPIROX [Concomitant]
     Active Substance: CICLOPIROX\TOCOPHEROL
     Dosage: UNK UNK, QD TO SCALP
     Route: 065
  6. CLOBETASOL [Concomitant]
     Active Substance: CLOBETASOL
     Dosage: UNK, TWICE DAILY FOR TWO WEEKS, TAKE 2 WEEKS OFF, REPEAT AS NEEDED FOR FLARES
     Route: 061
  7. DICYCLOMINE [Concomitant]
     Active Substance: DICYCLOMINE HYDROCHLORIDE
     Dosage: 20 MILLIGRAM
     Route: 065
  8. FLUOCINONIDE [Concomitant]
     Active Substance: FLUOCINONIDE
     Dosage: UNK
     Route: 065
  9. FOLIC ACID [Concomitant]
     Active Substance: FOLIC ACID
     Dosage: 1 MILLIGRAM
     Route: 065
  10. LEVOTHYROXINE [Concomitant]
     Active Substance: LEVOTHYROXINE
     Dosage: 25 MICROGRAM
     Route: 065
  11. HYDROCORTISONE [Concomitant]
     Active Substance: HYDROCORTISONE
     Dosage: UNK, TWICE DAILY FOR TWO WEEKS, TAKE 2 WEEKS OFF, REPEAT AS NEEDED FOR FLARES
     Route: 061
  12. HYDROCODONE BITARTRATE AND IBUPROFEN [Concomitant]
     Active Substance: HYDROCODONE BITARTRATE\IBUPROFEN
     Dosage: UNK, 2.5-200 MILLIGRAM AS NECESSARY
     Route: 048

REACTIONS (4)
  - Drug ineffective [Not Recovered/Not Resolved]
  - Psoriasis [Unknown]
  - Post procedural discomfort [Unknown]
  - Intentional product misuse [Unknown]

NARRATIVE: CASE EVENT DATE: 20220101
